FAERS Safety Report 25263410 (Version 1)
Quarter: 2025Q2

REPORT INFORMATION
  Report Type: Spontaneous
  Country: IL (occurrence: IL)
  Receive Date: 20250502
  Receipt Date: 20250502
  Transmission Date: 20250716
  Serious: Yes (Other)
  Sender: BRISTOL MYERS SQUIBB
  Company Number: IL-BRISTOL-MYERS SQUIBB COMPANY-2025-064084

PATIENT
  Age: 73 Year
  Sex: Female

DRUGS (1)
  1. REBLOZYL [Suspect]
     Active Substance: LUSPATERCEPT-AAMT
     Indication: Anaemia macrocytic

REACTIONS (1)
  - Erythroid dysplasia [Unknown]
